FAERS Safety Report 6446726-X (Version None)
Quarter: 2009Q4

REPORT INFORMATION
  Report Type: 
  Country: None (occurrence: None)
  Receive Date: 20091102
  Receipt Date: 20080806
  Transmission Date: 20100525
  Serious: No
  Sender: FDA-Public Use
  Company Number: AEUSA200800166

PATIENT
  Age: 46 Year
  Sex: Male
  Weight: 83.4619 kg

DRUGS (7)
  1. GAMUNEX [Suspect]
     Indication: IMMUNODEFICIENCY COMMON VARIABLE
     Dosage: 40 GM; TOTAL; IV
     Route: 042
     Dates: start: 20071201, end: 20080716
  2. GAMUNEX [Suspect]
  3. CHLORPHENIRAMINE W/ PSEUDOEPHEDRINE [Concomitant]
  4. METHSCOPOLAMINE BROMIDE [Concomitant]
  5. AUGMENTIN '125' [Concomitant]
  6. TYLENOL (CAPLET) [Concomitant]
  7. BENADRYL [Concomitant]

REACTIONS (1)
  - URTICARIA [None]
